FAERS Safety Report 13258907 (Version 4)
Quarter: 2017Q4

REPORT INFORMATION
  Report Type: Report from Study
  Country: GB (occurrence: GB)
  Receive Date: 20170222
  Receipt Date: 20171002
  Transmission Date: 20180320
  Serious: Yes (Hospitalization)
  Sender: FDA-Public Use
  Company Number: GB-JNJFOC-20170211074

PATIENT
  Age: 75 Year
  Sex: Male

DRUGS (3)
  1. SIMPONI [Suspect]
     Active Substance: GOLIMUMAB
     Indication: PRODUCT USED FOR UNKNOWN INDICATION
     Dosage: PEN
     Route: 058
     Dates: end: 20170103
  2. LEFLUNOMIDE. [Suspect]
     Active Substance: LEFLUNOMIDE
     Indication: PRODUCT USED FOR UNKNOWN INDICATION
     Route: 065
  3. SIMPONI [Suspect]
     Active Substance: GOLIMUMAB
     Indication: PRODUCT USED FOR UNKNOWN INDICATION
     Route: 058
     Dates: start: 20170903

REACTIONS (7)
  - Arthralgia [Unknown]
  - Drug ineffective [Unknown]
  - Ulcer haemorrhage [Unknown]
  - Duodenal ulcer [Unknown]
  - Anaemia [Recovered/Resolved]
  - Hospitalisation [Unknown]
  - Syncope [Unknown]

NARRATIVE: CASE EVENT DATE: 201701
